FAERS Safety Report 21337211 (Version 2)
Quarter: 2022Q3

REPORT INFORMATION
  Report Type: Spontaneous
  Country: CN (occurrence: CN)
  Receive Date: 20220915
  Receipt Date: 20220916
  Transmission Date: 20221027
  Serious: Yes (Hospitalization)
  Sender: FDA-Public Use
  Company Number: CN-NOVARTISPH-NVSC2022CN207662

PATIENT
  Age: 14 Year
  Sex: Female
  Weight: 55.7 kg

DRUGS (10)
  1. TRILEPTAL [Suspect]
     Active Substance: OXCARBAZEPINE
     Indication: Bipolar disorder
     Dosage: 0.15 G, BID
     Route: 048
     Dates: start: 20220823
  2. TRILEPTAL [Suspect]
     Active Substance: OXCARBAZEPINE
     Dosage: 0.2 G, BID
     Route: 065
  3. TRILEPTAL [Suspect]
     Active Substance: OXCARBAZEPINE
     Dosage: 0.3 G, BID
     Route: 048
     Dates: start: 20220823, end: 20220906
  4. LAMOTRIGINE [Suspect]
     Active Substance: LAMOTRIGINE
     Indication: Bipolar disorder
     Dosage: 50 MG, BID
     Route: 048
     Dates: start: 20220808, end: 20220831
  5. LITHIUM CARBONATE [Concomitant]
     Active Substance: LITHIUM CARBONATE
     Indication: Bipolar disorder
     Dosage: 0.3 G, QD
     Route: 048
     Dates: end: 20220829
  6. QUETIAPINE FUMARATE [Concomitant]
     Active Substance: QUETIAPINE FUMARATE
     Indication: Bipolar disorder
     Dosage: 0.35 G, BID
     Route: 048
     Dates: start: 20220719, end: 20220908
  7. ZIPRASIDONE HYDROCHLORIDE [Concomitant]
     Active Substance: ZIPRASIDONE HYDROCHLORIDE
     Indication: Affective disorder
     Dosage: 20 MG, QD
     Route: 048
     Dates: start: 20220822
  8. ZIPRASIDONE HYDROCHLORIDE [Concomitant]
     Active Substance: ZIPRASIDONE HYDROCHLORIDE
     Indication: Depression
  9. EBASTINE [Concomitant]
     Active Substance: EBASTINE
     Indication: Nasal vestibulitis
     Dosage: 10 MG, QD
     Route: 048
     Dates: start: 20220825
  10. OFLOXACIN [Concomitant]
     Active Substance: OFLOXACIN
     Indication: Nasal vestibulitis
     Dosage: 1 DOSAGE FORM (3.5G, 10.5MG)
     Route: 065

REACTIONS (1)
  - Dermatitis allergic [Unknown]

NARRATIVE: CASE EVENT DATE: 20220825
